FAERS Safety Report 17841095 (Version 7)
Quarter: 2022Q1

REPORT INFORMATION
  Report Type: Spontaneous
  Country: US (occurrence: US)
  Receive Date: 20200529
  Receipt Date: 20220207
  Transmission Date: 20220423
  Serious: No
  Sender: FDA-Public Use
  Company Number: US-PFIZER INC-2020211716

PATIENT
  Age: 61 Year
  Sex: Female

DRUGS (3)
  1. IBRANCE [Suspect]
     Active Substance: PALBOCICLIB
     Indication: Neoplasm malignant
     Dosage: 125 MG
     Dates: start: 20200316
  2. IBRANCE [Suspect]
     Active Substance: PALBOCICLIB
     Indication: Nervous system neoplasm
     Dosage: 125 MG
     Dates: start: 20200501
  3. IBRANCE [Suspect]
     Active Substance: PALBOCICLIB
     Dosage: 100 MG, CYCLIC (7 DAYS ON 7 DAYS OFF)
     Route: 048

REACTIONS (6)
  - Alopecia [Unknown]
  - Haemoglobin decreased [Unknown]
  - Weight decreased [Unknown]
  - Decreased appetite [Unknown]
  - Neuralgia [Unknown]
  - Dry skin [Unknown]

NARRATIVE: CASE EVENT DATE: 20200101
